FAERS Safety Report 5322047-3 (Version None)
Quarter: 2007Q2

REPORT INFORMATION
  Report Type: 
  Country: None (occurrence: None)
  Receive Date: 20070508
  Receipt Date: 20070508
  Transmission Date: 20071010
  Serious: Yes (Other)
  Sender: FDA-Public Use
  Company Number: None

PATIENT
  Sex: Male
  Weight: 64.4108 kg

DRUGS (1)
  1. ZOCOR [Suspect]

REACTIONS (1)
  - DIARRHOEA [None]
